FAERS Safety Report 4842341-X (Version None)
Quarter: 2005Q4

REPORT INFORMATION
  Report Type: 
  Country: None (occurrence: None)
  Receive Date: 20051201
  Receipt Date: 20051116
  Transmission Date: 20060501
  Serious: Yes (Hospitalization)
  Sender: FDA-Public Use
  Company Number: SEWYE145216NOV05

PATIENT
  Sex: Male

DRUGS (8)
  1. ENBREL [Suspect]
     Indication: ARTHRITIS
     Dosage: 50 MG PER WEEK
     Route: 058
     Dates: start: 20050615, end: 20050815
  2. FUROSEMIDE [Concomitant]
     Route: 065
  3. FOSAMAX [Concomitant]
     Route: 065
  4. GLYBURIDE [Concomitant]
     Route: 065
  5. PREDNISOLONE [Concomitant]
     Route: 065
  6. PANTOPRAZOLE SODIUM [Concomitant]
     Route: 065
  7. CARVEDILOL [Concomitant]
     Route: 065
  8. PARACETAMOL [Concomitant]
     Route: 065

REACTIONS (1)
  - PHOTOSENSITIVITY REACTION [None]
